FAERS Safety Report 25129048 (Version 1)
Quarter: 2025Q1

REPORT INFORMATION
  Report Type: Spontaneous
  Country: CN (occurrence: CN)
  Receive Date: 20250327
  Receipt Date: 20250327
  Transmission Date: 20250409
  Serious: Yes (Death, Other)
  Sender: AZURITY PHARMACEUTICALS
  Company Number: CN-AZURITY PHARMACEUTICALS, INC.-AZR202503-000847

PATIENT
  Age: 22 Year
  Sex: Male

DRUGS (1)
  1. METHYLPREDNISOLONE ACETATE [Suspect]
     Active Substance: METHYLPREDNISOLONE ACETATE
     Indication: Nephrotic syndrome
     Route: 048

REACTIONS (3)
  - Myelosuppression [Fatal]
  - Disseminated varicella zoster virus infection [Fatal]
  - Hepatic enzyme increased [Unknown]
